FAERS Safety Report 25201615 (Version 2)
Quarter: 2025Q2

REPORT INFORMATION
  Report Type: Report from Study
  Country: US (occurrence: US)
  Receive Date: 20250416
  Receipt Date: 20250528
  Transmission Date: 20250717
  Serious: Yes (Other)
  Sender: HELSINN HEALTHCARE
  Company Number: US-HBP-2025US031885

PATIENT
  Age: 78 Year
  Sex: Male

DRUGS (8)
  1. VALCHLOR [Suspect]
     Active Substance: MECHLORETHAMINE
     Indication: Cutaneous T-cell lymphoma
     Dosage: UNK, BID
     Route: 061
     Dates: start: 202501, end: 2025
  2. VALCHLOR [Suspect]
     Active Substance: MECHLORETHAMINE
     Dosage: UNK, BID
     Route: 061
     Dates: start: 2025
  3. ISOSORBIDE MONONITRATE [Concomitant]
     Active Substance: ISOSORBIDE MONONITRATE
  4. ASPIRIN [Concomitant]
     Active Substance: ASPIRIN
  5. ATORVASTATIN CALCIUM [Concomitant]
     Active Substance: ATORVASTATIN CALCIUM
  6. ELIQUIS [Concomitant]
     Active Substance: APIXABAN
  7. LISINOPRIL [Concomitant]
     Active Substance: LISINOPRIL
  8. CARVEDILOL [Concomitant]
     Active Substance: CARVEDILOL

REACTIONS (4)
  - Cutaneous T-cell lymphoma [Unknown]
  - Off label use [Unknown]
  - Intentional dose omission [Unknown]
  - Fatigue [Unknown]

NARRATIVE: CASE EVENT DATE: 20250101
